FAERS Safety Report 22146979 (Version 28)
Quarter: 2025Q2

REPORT INFORMATION
  Report Type: Report from Study
  Country: US (occurrence: US)
  Receive Date: 20230328
  Receipt Date: 20250515
  Transmission Date: 20250717
  Serious: Yes (Other)
  Sender: JAZZ
  Company Number: US-JAZZ PHARMACEUTICALS-2023-US-004491

PATIENT
  Age: 61 Year
  Sex: Female

DRUGS (32)
  1. XYWAV [Suspect]
     Active Substance: CALCIUM OXYBATE\MAGNESIUM OXYBATE\POTASSIUM OXYBATE\SODIUM OXYBATE
     Indication: Hypersomnia
     Dosage: 2.75 GRAM
     Route: 048
     Dates: start: 20230216
  2. XYWAV [Suspect]
     Active Substance: CALCIUM OXYBATE\MAGNESIUM OXYBATE\POTASSIUM OXYBATE\SODIUM OXYBATE
     Dosage: 2.25 MILLIGRAM, BID
     Dates: start: 20230217
  3. XYWAV [Suspect]
     Active Substance: CALCIUM OXYBATE\MAGNESIUM OXYBATE\POTASSIUM OXYBATE\SODIUM OXYBATE
     Dosage: 3 GRAM, BID, TWICE NIGHTLY
  4. XYWAV [Suspect]
     Active Substance: CALCIUM OXYBATE\MAGNESIUM OXYBATE\POTASSIUM OXYBATE\SODIUM OXYBATE
     Dosage: 2.25 GRAM, BID
     Route: 048
  5. XYWAV [Suspect]
     Active Substance: CALCIUM OXYBATE\MAGNESIUM OXYBATE\POTASSIUM OXYBATE\SODIUM OXYBATE
     Route: 048
     Dates: start: 2023
  6. XYWAV [Suspect]
     Active Substance: CALCIUM OXYBATE\MAGNESIUM OXYBATE\POTASSIUM OXYBATE\SODIUM OXYBATE
     Dosage: 2.5 GRAM, BID
     Route: 048
     Dates: start: 20230216
  7. XYWAV [Suspect]
     Active Substance: CALCIUM OXYBATE\MAGNESIUM OXYBATE\POTASSIUM OXYBATE\SODIUM OXYBATE
     Dosage: 2.25 GRAM, BID
  8. XYWAV [Suspect]
     Active Substance: CALCIUM OXYBATE\MAGNESIUM OXYBATE\POTASSIUM OXYBATE\SODIUM OXYBATE
  9. XYWAV [Suspect]
     Active Substance: CALCIUM OXYBATE\MAGNESIUM OXYBATE\POTASSIUM OXYBATE\SODIUM OXYBATE
  10. BUSPIRONE HCL [Suspect]
     Active Substance: BUSPIRONE HYDROCHLORIDE
     Indication: Anxiety
     Dates: start: 20230428
  11. BUSPIRONE HCL [Suspect]
     Active Substance: BUSPIRONE HYDROCHLORIDE
     Dosage: 5 MILLIGRAM, BID
     Dates: start: 20250508
  12. HYDROCODONE [Suspect]
     Active Substance: HYDROCODONE
     Indication: Product used for unknown indication
  13. ESTRADIOL [Suspect]
     Active Substance: ESTRADIOL
     Indication: Product used for unknown indication
     Dates: start: 20230505
  14. PRASTERONE [Suspect]
     Active Substance: PRASTERONE
     Indication: Product used for unknown indication
     Dates: start: 20230505
  15. FAMOTIDINE [Concomitant]
     Active Substance: FAMOTIDINE
     Indication: Product used for unknown indication
     Dates: start: 20221119
  16. LAMOTRIGINE [Concomitant]
     Active Substance: LAMOTRIGINE
     Indication: Product used for unknown indication
     Dates: start: 20221017
  17. LAMOTRIGINE [Concomitant]
     Active Substance: LAMOTRIGINE
     Dates: start: 20230105
  18. ORAJEL MOUTH SORES [Concomitant]
     Indication: Product used for unknown indication
     Dates: start: 20230221
  19. FLUTICASONE PROPIONATE [Concomitant]
     Active Substance: FLUTICASONE PROPIONATE
     Indication: Product used for unknown indication
     Dates: start: 20200912
  20. TESTOSTERONE [Concomitant]
     Active Substance: TESTOSTERONE
     Indication: Product used for unknown indication
     Dates: start: 20230505
  21. RHODIOLAN [Concomitant]
     Indication: Product used for unknown indication
     Dates: start: 20230505
  22. STRONTIUM CHLORIDE [Concomitant]
     Active Substance: STRONTIUM CHLORIDE
     Indication: Product used for unknown indication
     Dates: start: 20230505
  23. HERBALS\WITHANIA SOMNIFERA ROOT [Concomitant]
     Active Substance: HERBALS\WITHANIA SOMNIFERA ROOT
     Indication: Product used for unknown indication
     Dates: start: 20230726
  24. VENLAFAXINE HCL [Concomitant]
     Active Substance: VENLAFAXINE HYDROCHLORIDE
     Indication: Product used for unknown indication
     Dates: start: 20231004
  25. SUDOGEST PE [Concomitant]
     Active Substance: PHENYLEPHRINE HYDROCHLORIDE
     Indication: Product used for unknown indication
     Dates: start: 20231023
  26. ROBITUSSIN AC [CODEINE PHOSPHATE;GUAIFENESIN;PHENIRAMINE MALEATE] [Concomitant]
     Indication: Product used for unknown indication
  27. RETINOL [Concomitant]
     Active Substance: RETINOL
     Indication: Product used for unknown indication
     Dates: start: 20241112
  28. PROBIOTICS NOS [Concomitant]
     Active Substance: PROBIOTICS NOS
     Indication: Product used for unknown indication
     Dates: start: 20241106
  29. DIGESTIVE ENZYME PLUS [Concomitant]
     Indication: Product used for unknown indication
     Dates: start: 20241106
  30. PSYLLIUM HUSK [Concomitant]
     Active Substance: PSYLLIUM HUSK
     Indication: Product used for unknown indication
     Dates: start: 20250220
  31. SUDAFED [Concomitant]
     Active Substance: PSEUDOEPHEDRINE HYDROCHLORIDE
     Indication: Product used for unknown indication
     Dates: start: 20231023
  32. SERTRALINE HYDROCHLORIDE [Concomitant]
     Active Substance: SERTRALINE HYDROCHLORIDE
     Indication: Product used for unknown indication
     Dates: start: 20250402

REACTIONS (64)
  - Hallucination [Unknown]
  - Loss of consciousness [Unknown]
  - Cataplexy [Unknown]
  - Disability [Unknown]
  - Presyncope [Unknown]
  - Disturbance in attention [Unknown]
  - Gingival blister [Unknown]
  - Back pain [Unknown]
  - Rhinorrhoea [Unknown]
  - Nasopharyngitis [Unknown]
  - Eye injury [Unknown]
  - Skin abrasion [Unknown]
  - Constipation [Unknown]
  - Abdominal discomfort [Unknown]
  - Anxiety [Recovered/Resolved]
  - Dizziness [Not Recovered/Not Resolved]
  - Emotional disorder [Unknown]
  - Photopsia [Unknown]
  - Osteoporosis [Unknown]
  - Coordination abnormal [Unknown]
  - Pain in extremity [Unknown]
  - Gait disturbance [Unknown]
  - Nervousness [Unknown]
  - Frustration tolerance decreased [Unknown]
  - Feeling jittery [Unknown]
  - Nausea [Unknown]
  - Limb injury [Unknown]
  - Fall [Not Recovered/Not Resolved]
  - Diarrhoea [Unknown]
  - Feeling abnormal [Unknown]
  - Headache [Recovered/Resolved]
  - Fatigue [Unknown]
  - Limb injury [Unknown]
  - Back injury [Unknown]
  - Hypotension [Unknown]
  - Pruritus [Unknown]
  - Alopecia [Unknown]
  - Accident [Unknown]
  - Lip injury [Recovering/Resolving]
  - Middle ear effusion [Unknown]
  - Somnolence [Unknown]
  - Injury [Unknown]
  - Weight decreased [Not Recovered/Not Resolved]
  - Libido decreased [Not Recovered/Not Resolved]
  - Depression [Recovering/Resolving]
  - Fall [Unknown]
  - Tooth loss [Unknown]
  - Gingival pain [Unknown]
  - Cough [Unknown]
  - Unevaluable event [Unknown]
  - Malaise [Unknown]
  - Migraine [Recovered/Resolved]
  - Hypoaesthesia [Recovered/Resolved]
  - Muscle spasms [Recovered/Resolved]
  - Dry mouth [Unknown]
  - Lip dry [Unknown]
  - Nocturia [Unknown]
  - Product prescribing error [Unknown]
  - Product dose omission issue [Unknown]
  - Incorrect product administration duration [Unknown]
  - Product administration interrupted [Unknown]
  - Drug ineffective [Unknown]
  - Intentional dose omission [Unknown]
  - Intentional product use issue [Unknown]

NARRATIVE: CASE EVENT DATE: 20230217
